FAERS Safety Report 9440050 (Version 5)
Quarter: 2013Q3

REPORT INFORMATION
  Report Type: Spontaneous
  Country: US (occurrence: US)
  Receive Date: 20130805
  Receipt Date: 20130925
  Transmission Date: 20140515
  Serious: Yes (Death, Hospitalization, Disabling)
  Sender: FDA-Public Use
  Company Number: US-JNJFOC-20130717093

PATIENT
  Age: 60 Year
  Sex: Female
  Weight: 110.22 kg

DRUGS (11)
  1. XARELTO [Suspect]
     Indication: THROMBOSIS PROPHYLAXIS
     Route: 048
     Dates: start: 20130512, end: 20130625
  2. XARELTO [Suspect]
     Indication: PULMONARY EMBOLISM
     Route: 048
     Dates: start: 20130512, end: 20130625
  3. AMBIEN [Concomitant]
     Route: 048
  4. HYDROCODONE APAP [Concomitant]
     Dosage: EVENING OR AFTERNOON
     Route: 065
  5. ZOLOFT [Concomitant]
     Route: 065
  6. LOSARTAN [Concomitant]
     Route: 065
  7. VALIUM [Concomitant]
     Dosage: PM- EVENING OR AFTERNOON
     Route: 065
  8. SPIRONOLACTONE [Concomitant]
     Dosage: PM- EVENING OR AFTERNOON
     Route: 065
  9. ZYRTEC [Concomitant]
     Route: 065
  10. CALCIUM AND VITAMIN D [Concomitant]
     Route: 065
  11. PHENERGAN [Concomitant]
     Dosage: PM- EVENING OR AFTERNOON
     Route: 065

REACTIONS (3)
  - Haemorrhage [Fatal]
  - Subdural haematoma [Fatal]
  - Cerebral haemorrhage [Fatal]
